FAERS Safety Report 20791116 (Version 2)
Quarter: 2022Q2

REPORT INFORMATION
  Report Type: Spontaneous
  Country: US (occurrence: US)
  Receive Date: 20220505
  Receipt Date: 20220509
  Transmission Date: 20220721
  Serious: No
  Sender: FDA-Public Use
  Company Number: US-MYLANLABS-2022M1032568

PATIENT
  Sex: Female
  Weight: 90.72 kg

DRUGS (2)
  1. ESTRADIOL TRANSDERMAL SYSTEM [Suspect]
     Active Substance: ESTRADIOL
     Indication: Menopausal symptoms
     Dosage: 0.1 MILLIGRAM, QD (0.1 MG/DAY ONCE-WEEKLY)
     Route: 062
  2. LISINOPRIL [Concomitant]
     Active Substance: LISINOPRIL
     Dosage: UNK (10-12MG)

REACTIONS (4)
  - Hypersensitivity [Unknown]
  - Application site pruritus [Unknown]
  - Application site pain [Unknown]
  - Application site erythema [Unknown]
